FAERS Safety Report 7995127-1 (Version None)
Quarter: 2011Q4

REPORT INFORMATION
  Report Type: 
  Country: None (occurrence: None)
  Receive Date: 20111220
  Receipt Date: 20111212
  Transmission Date: 20120403
  Serious: Yes (Other)
  Sender: FDA-Public Use
  Company Number: CA-GLAXOSMITHKLINE-A0957615A

PATIENT
  Sex: Male
  Weight: 90.9 kg

DRUGS (2)
  1. UNKNOWN MEDICATION [Concomitant]
  2. ADVAIR DISKUS 100/50 [Suspect]
     Indication: CHRONIC OBSTRUCTIVE PULMONARY DISEASE
     Dosage: 1PUFF PER DAY
     Route: 055
     Dates: start: 20070101

REACTIONS (4)
  - PNEUMONIA [None]
  - BRONCHITIS [None]
  - WEIGHT DECREASED [None]
  - INFLUENZA [None]
